FAERS Safety Report 15792136 (Version 5)
Quarter: 2019Q3

REPORT INFORMATION
  Report Type: Spontaneous
  Country: JP (occurrence: JP)
  Receive Date: 20190106
  Receipt Date: 20190909
  Transmission Date: 20191004
  Serious: Yes (Other)
  Sender: FDA-Public Use
  Company Number: JP-BEH-2018098071

PATIENT
  Sex: Male

DRUGS (14)
  1. IDELVION [Suspect]
     Active Substance: COAGULATION FACTOR IX RECOMBINANT HUMAN
     Dosage: 4000 INTERNATIONAL UNIT
     Route: 042
     Dates: start: 20190830, end: 20190830
  2. IDELVION [Suspect]
     Active Substance: COAGULATION FACTOR IX RECOMBINANT HUMAN
     Dosage: 2000 IU, TOT
     Route: 042
     Dates: start: 20181212, end: 20181212
  3. IDELVION [Suspect]
     Active Substance: COAGULATION FACTOR IX RECOMBINANT HUMAN
     Dosage: 2000 IU, TOT
     Route: 042
     Dates: start: 20181212, end: 20181212
  4. IDELVION [Suspect]
     Active Substance: COAGULATION FACTOR IX RECOMBINANT HUMAN
     Dosage: 2000 IU, TOT
     Route: 042
     Dates: start: 20181215, end: 20181215
  5. IDELVION [Suspect]
     Active Substance: COAGULATION FACTOR IX RECOMBINANT HUMAN
     Dosage: 4000 IU (2000 IU X 2 VIALS), TOT
     Route: 042
     Dates: start: 20181220, end: 20181220
  6. IDELVION [Suspect]
     Active Substance: COAGULATION FACTOR IX RECOMBINANT HUMAN
     Dosage: 4000 IU (2000 IU X 2 VIALS), TOT
     Route: 042
     Dates: start: 20181220, end: 20181220
  7. IDELVION [Suspect]
     Active Substance: COAGULATION FACTOR IX RECOMBINANT HUMAN
     Dosage: 2000 IU, TOT
     Route: 042
     Dates: start: 20181218, end: 20181218
  8. IDELVION [Suspect]
     Active Substance: COAGULATION FACTOR IX RECOMBINANT HUMAN
     Dosage: 2000 IU, TOT
     Route: 042
     Dates: start: 20181215, end: 20181215
  9. IDELVION [Suspect]
     Active Substance: COAGULATION FACTOR IX RECOMBINANT HUMAN
     Indication: PRODUCT USED FOR UNKNOWN INDICATION
     Dosage: 2000 IU, TOT
     Route: 042
     Dates: start: 20181211, end: 20181211
  10. IDELVION [Suspect]
     Active Substance: COAGULATION FACTOR IX RECOMBINANT HUMAN
     Dosage: 2000 IU, TOT
     Route: 042
     Dates: start: 20181218, end: 20181218
  11. IDELVION [Suspect]
     Active Substance: COAGULATION FACTOR IX RECOMBINANT HUMAN
     Indication: PRODUCT USED FOR UNKNOWN INDICATION
     Dosage: 2000 IU, TOT
     Route: 042
     Dates: start: 20181211, end: 20181211
  12. IDELVION [Suspect]
     Active Substance: COAGULATION FACTOR IX RECOMBINANT HUMAN
     Dosage: 4000 IU (2000 IU X 2 VIALS), TOT
     Route: 042
     Dates: start: 20181219, end: 20181219
  13. IDELVION [Suspect]
     Active Substance: COAGULATION FACTOR IX RECOMBINANT HUMAN
     Dosage: 4000 INTERNATIONAL UNIT
     Route: 042
     Dates: start: 20190830, end: 20190830
  14. IDELVION [Suspect]
     Active Substance: COAGULATION FACTOR IX RECOMBINANT HUMAN
     Dosage: 4000 IU (2000 IU X 2 VIALS), TOT
     Route: 042
     Dates: start: 20181219, end: 20181219

REACTIONS (3)
  - Post procedural haemorrhage [Recovering/Resolving]
  - Haemorrhage [Recovering/Resolving]
  - Contusion [Recovering/Resolving]

NARRATIVE: CASE EVENT DATE: 20181219
